FAERS Safety Report 9157572 (Version 1)
Quarter: 2013Q1

REPORT INFORMATION
  Report Type: Spontaneous
  Country: US (occurrence: US)
  Receive Date: 20130312
  Receipt Date: 20130312
  Transmission Date: 20140127
  Serious: Yes (Other)
  Sender: FDA-Public Use
  Company Number: PHEH2013US005587

PATIENT
  Sex: Female

DRUGS (2)
  1. TRILEPTAL [Suspect]
     Dosage: 300 MG, UNK
  2. TRILEPTAL [Suspect]
     Dosage: 600 MG, UNK

REACTIONS (2)
  - Pituitary tumour [Unknown]
  - Hyponatraemia [Unknown]
